FAERS Safety Report 8212364-1 (Version None)
Quarter: 2012Q1

REPORT INFORMATION
  Report Type: 
  Country: None (occurrence: None)
  Receive Date: 20120315
  Receipt Date: 20120307
  Transmission Date: 20120608
  Serious: Yes (Other)
  Sender: FDA-Public Use
  Company Number: US-JNJFOC-20101202337

PATIENT
  Sex: Male

DRUGS (12)
  1. PREDNISONE TAB [Suspect]
     Indication: PROSTATE CANCER METASTATIC
     Route: 048
     Dates: start: 20101123
  2. LUPRON [Concomitant]
     Indication: PROSTATE CANCER
     Route: 030
     Dates: start: 20100407
  3. PREDNISONE TAB [Suspect]
     Route: 048
     Dates: start: 20100407
  4. LUPRON [Concomitant]
     Route: 030
     Dates: start: 20090121
  5. LUPRON [Concomitant]
     Route: 030
     Dates: start: 20090121
  6. NAPROXEN (ALEVE) [Concomitant]
     Indication: BACK PAIN
     Route: 048
     Dates: start: 20100101
  7. ABIRATERONE ACETATE [Suspect]
     Route: 048
     Dates: start: 20100407
  8. LUPRON [Concomitant]
     Indication: HORMONE THERAPY
     Route: 030
     Dates: start: 20100407
  9. ABIRATERONE ACETATE [Suspect]
     Route: 048
     Dates: start: 20100506
  10. ABIRATERONE ACETATE [Suspect]
     Indication: PROSTATE CANCER METASTATIC
     Route: 048
     Dates: start: 20110113
  11. PREDNISONE TAB [Suspect]
     Route: 048
     Dates: start: 20110113
  12. QUININE SULFATE [Concomitant]
     Indication: MUSCLE SPASMS
     Route: 048
     Dates: start: 20100601

REACTIONS (1)
  - MYOCARDIAL ISCHAEMIA [None]
